FAERS Safety Report 16754495 (Version 1)
Quarter: 2019Q3

REPORT INFORMATION
  Report Type: Report from Study
  Country: CA (occurrence: CA)
  Receive Date: 20190829
  Receipt Date: 20190829
  Transmission Date: 20191005
  Serious: Yes (Hospitalization)
  Sender: FDA-Public Use
  Company Number: PHHY2017CA158557

PATIENT
  Age: 49 Year
  Sex: Female

DRUGS (4)
  1. COSENTYX [Suspect]
     Active Substance: SECUKINUMAB
     Dosage: 300 MG, QMO
     Route: 058
  2. COSENTYX [Suspect]
     Active Substance: SECUKINUMAB
     Indication: PSORIASIS
     Dosage: 300 MG, QMO
     Route: 058
     Dates: start: 20170628
  3. METHOTREXATE. [Concomitant]
     Active Substance: METHOTREXATE
     Indication: PRODUCT USED FOR UNKNOWN INDICATION
     Route: 065
  4. COSENTYX [Suspect]
     Active Substance: SECUKINUMAB
     Dosage: 300 MG, QMO
     Route: 058
     Dates: start: 20170926

REACTIONS (14)
  - Gait disturbance [Unknown]
  - Macule [Unknown]
  - Inappropriate schedule of product administration [Unknown]
  - Stress [Recovering/Resolving]
  - Fall [Unknown]
  - Hypertension [Unknown]
  - Psoriasis [Unknown]
  - Pyrexia [Unknown]
  - Nasal congestion [Unknown]
  - Ligament sprain [Unknown]
  - Asthma [Unknown]
  - Influenza [Unknown]
  - Sensation of foreign body [Unknown]
  - Arthralgia [Unknown]

NARRATIVE: CASE EVENT DATE: 20170628
